FAERS Safety Report 4375501-5 (Version None)
Quarter: 2004Q2

REPORT INFORMATION
  Report Type: 
  Country: None (occurrence: None)
  Receive Date: 20040607
  Receipt Date: 20040528
  Transmission Date: 20050107
  Serious: Yes (Hospitalization)
  Sender: FDA-Public Use
  Company Number: 2004036095

PATIENT
  Age: 48 Year
  Sex: Female

DRUGS (1)
  1. LISTERINE (EUCALYPTOL, MENTHOL, METHYL SALICYLATE, THYMOL) [Suspect]
     Indication: ALCOHOLISM
     Dosage: ORAL
     Route: 048

REACTIONS (1)
  - DRUG ABUSER [None]
